FAERS Safety Report 4369817-6 (Version None)
Quarter: 2004Q2

REPORT INFORMATION
  Report Type: 
  Country: None (occurrence: None)
  Receive Date: 20040603
  Receipt Date: 20040414
  Transmission Date: 20050107
  Serious: Yes (Hospitalization, Disabling)
  Sender: FDA-Public Use
  Company Number: US-MERCK-0404USA01464

PATIENT
  Age: 67 Year
  Sex: Female

DRUGS (2)
  1. FOSAMAX [Suspect]
     Indication: OSTEOPENIA
     Route: 048
     Dates: end: 20030101
  2. ORUVAIL [Concomitant]
     Route: 065

REACTIONS (3)
  - ACQUIRED PYLORIC STENOSIS [None]
  - GASTROINTESTINAL ULCER [None]
  - SCAR [None]
